FAERS Safety Report 15598604 (Version 1)
Quarter: 2018Q4

REPORT INFORMATION
  Report Type: Spontaneous
  Country: US (occurrence: US)
  Receive Date: 20181107
  Receipt Date: 20181107
  Transmission Date: 20190205
  Serious: Yes (Hospitalization)
  Sender: FDA-Public Use
  Company Number: None

PATIENT
  Age: 67 Year
  Weight: 65.77 kg

DRUGS (5)
  1. DITROPEN 10MG [Concomitant]
  2. CALCIUM [Concomitant]
     Active Substance: CALCIUM
  3. OMOPOROZOLE [Concomitant]
  4. AMLODIPINE [Concomitant]
     Active Substance: AMLODIPINE BESYLATE
  5. ZOMETA [Suspect]
     Active Substance: ZOLEDRONIC ACID
     Indication: OSTEOPOROSIS
     Dosage: ?          OTHER FREQUENCY:2 X YEARLY;?
     Route: 042
     Dates: end: 20180823

REACTIONS (6)
  - Limb discomfort [None]
  - Headache [None]
  - Dyspnoea [None]
  - Skin tightness [None]
  - Fatigue [None]
  - Dizziness [None]

NARRATIVE: CASE EVENT DATE: 20180906
